FAERS Safety Report 5629005-X (Version None)
Quarter: 2008Q1

REPORT INFORMATION
  Report Type: 
  Country: None (occurrence: None)
  Receive Date: 20080214
  Receipt Date: 20070907
  Transmission Date: 20080703
  Serious: Yes (Death, Hospitalization, Other)
  Sender: FDA-Public Use
  Company Number: 163-21880-07020764

PATIENT
  Age: 57 Year
  Sex: Male
  Weight: 92.5338 kg

DRUGS (17)
  1. REVLIMID [Suspect]
     Indication: CHRONIC LYMPHOCYTIC LEUKAEMIA
     Dosage: 25 MG, QD, ORAL
     Route: 048
     Dates: start: 20070105, end: 20070109
  2. PREDNISONE TAB [Suspect]
     Indication: CHRONIC LYMPHOCYTIC LEUKAEMIA
     Dosage: 20 MG, QD, ORAL
     Route: 048
     Dates: start: 20070105, end: 20070107
  3. CORTICOSTEROIDS (CORTICOSTEROIDS) [Concomitant]
  4. PLATELETS (PLATELETS) [Concomitant]
  5. PACKED RED BLOOD CELLS (BLOOD CELLS, PACKED HUMAN) [Concomitant]
  6. ATENOLOL [Concomitant]
  7. PRILOSCE (OMEPRAZOLE) [Concomitant]
  8. OXYCODONE HCL [Concomitant]
  9. ALLOPURINOL [Concomitant]
  10. VALTREX [Concomitant]
  11. AMIKACIN [Concomitant]
  12. CIPROFLOXACIN [Concomitant]
  13. VANCOMYCIN [Concomitant]
  14. IMIPENEM/CILSTATIN (PRIMAXIN) [Concomitant]
  15. FLUCONAZOLE [Concomitant]
  16. CASPOFUNGIN (CASPOFUNGIN) [Concomitant]
  17. RASBURICASE (RASBURICASE) [Concomitant]

REACTIONS (20)
  - ABDOMINAL PAIN [None]
  - ASTHENIA [None]
  - BACK PAIN [None]
  - BLOOD LACTATE DEHYDROGENASE INCREASED [None]
  - CONDITION AGGRAVATED [None]
  - DRUG DOSE OMISSION [None]
  - DRUG TOXICITY [None]
  - HYPERPHOSPHATAEMIA [None]
  - HYPERURICAEMIA [None]
  - LETHARGY [None]
  - LYMPHADENOPATHY [None]
  - LYMPHOCYTOSIS [None]
  - MALAISE [None]
  - MENTAL STATUS CHANGES [None]
  - RENAL FAILURE ACUTE [None]
  - RESPIRATORY FAILURE [None]
  - RETROPERITONEAL LYMPHADENOPATHY [None]
  - TUMOUR FLARE [None]
  - TUMOUR LYSIS SYNDROME [None]
  - WHITE BLOOD CELL COUNT DECREASED [None]
